FAERS Safety Report 7900842-1 (Version None)
Quarter: 2011Q4

REPORT INFORMATION
  Report Type: 
  Country: None (occurrence: None)
  Receive Date: 20111108
  Receipt Date: 20111108
  Transmission Date: 20120403
  Serious: Yes (Hospitalization)
  Sender: FDA-Public Use
  Company Number: None

PATIENT
  Age: 22 Year
  Sex: Male
  Weight: 77.66 kg

DRUGS (1)
  1. HUMIRA [Suspect]
     Indication: CROHN'S DISEASE
     Dosage: 160 MG
     Route: 058
     Dates: start: 20110817, end: 20110817

REACTIONS (6)
  - OROPHARYNGEAL PAIN [None]
  - PAPULE [None]
  - PYREXIA [None]
  - BLISTER [None]
  - RASH ERYTHEMATOUS [None]
  - SCAB [None]
